FAERS Safety Report 24184959 (Version 1)
Quarter: 2024Q3

REPORT INFORMATION
  Report Type: Report from Study
  Country: CA (occurrence: CA)
  Receive Date: 20240807
  Receipt Date: 20240807
  Transmission Date: 20241017
  Serious: Yes (Other)
  Sender: BIOCON
  Company Number: CA-BIOCON BIOLOGICS LIMITED-BBL2024005713

PATIENT

DRUGS (1)
  1. HULIO [Suspect]
     Active Substance: ADALIMUMAB-FKJP
     Indication: Rheumatoid arthritis
     Dosage: 40 MILLIGRAM, Q2W (SOLUTION)
     Route: 058

REACTIONS (5)
  - Gait disturbance [Unknown]
  - Injection related reaction [Unknown]
  - Arthralgia [Unknown]
  - Palpitations [Unknown]
  - Dyspnoea [Unknown]
